FAERS Safety Report 16063455 (Version 1)
Quarter: 2019Q1

REPORT INFORMATION
  Report Type: Report from Study
  Country: None (occurrence: NL)
  Receive Date: 20190312
  Receipt Date: 20190312
  Transmission Date: 20190418
  Serious: Yes (Death)
  Sender: FDA-Public Use
  Company Number: NL-ABBVIE-17P-114-1977340-00

PATIENT
  Age: 77 Year
  Sex: Male
  Weight: 44 kg

DRUGS (5)
  1. DUODOPA [Suspect]
     Active Substance: CARBIDOPA\LEVODOPA
     Route: 050
  2. DUODOPA [Suspect]
     Active Substance: CARBIDOPA\LEVODOPA
     Dosage: MORNING DOSE: 7.0 CONTINUOUS DOSE: 3.7 EXTRA DOSE 1.6
     Route: 050
  3. DUODOPA [Suspect]
     Active Substance: CARBIDOPA\LEVODOPA
     Dosage: MD: 7.5, CD: 4.0, ED: 1.8
     Route: 050
  4. DUODOPA [Suspect]
     Active Substance: CARBIDOPA\LEVODOPA
     Indication: PARKINSON^S DISEASE
     Dosage: MORNING DOSE: 6.3, CONTINUOUS DOSE: 3.3 EXTRA DOSE 1.6
     Route: 050
     Dates: start: 20101112
  5. MACROGOL [Concomitant]
     Active Substance: POLYETHYLENE GLYCOLS
     Indication: PRODUCT USED FOR UNKNOWN INDICATION

REACTIONS (15)
  - Abnormal dreams [Not Recovered/Not Resolved]
  - Decreased appetite [Not Recovered/Not Resolved]
  - Drug effect delayed [Not Recovered/Not Resolved]
  - Mobility decreased [Not Recovered/Not Resolved]
  - Tension [Not Recovered/Not Resolved]
  - Nightmare [Not Recovered/Not Resolved]
  - Underweight [Unknown]
  - Balance disorder [Not Recovered/Not Resolved]
  - Disturbance in attention [Not Recovered/Not Resolved]
  - Wound [Unknown]
  - On and off phenomenon [Not Recovered/Not Resolved]
  - Death [Fatal]
  - Memory impairment [Not Recovered/Not Resolved]
  - Fall [Not Recovered/Not Resolved]
  - Inflammation of wound [Not Recovered/Not Resolved]

NARRATIVE: CASE EVENT DATE: 20190304
